FAERS Safety Report 7015363-0 (Version None)
Quarter: 2010Q3

REPORT INFORMATION
  Report Type: 
  Country: None (occurrence: None)
  Receive Date: 20100922
  Receipt Date: 20100907
  Transmission Date: 20110219
  Serious: Yes (Hospitalization, Other)
  Sender: FDA-Public Use
  Company Number: AUR-APL-2010-02237

PATIENT
  Age: 36 Year
  Sex: Female
  Weight: 54 kg

DRUGS (22)
  1. SERTRALINE HYDROCHLORIDE [Suspect]
  2. LAMICTAL [Suspect]
     Indication: EPILEPSY
     Dosage: 400MG-TWICE DAILY-ORAL
     Route: 048
     Dates: start: 20040101
  3. ARIPIPRAZOLE [Suspect]
  4. DIHYDROCODEINE COMPOUND [Suspect]
  5. LANSOPRAZOLE [Suspect]
  6. NORETHISTERONE [Suspect]
  7. PROPRANOLOL [Suspect]
  8. AMOXICILLIN [Concomitant]
  9. BETAMETHASONE [Concomitant]
  10. CHLORAMPHENICOL [Concomitant]
  11. CLOBAZAM [Concomitant]
  12. AMPICILLIN SODIUM/SULBACTAM SODIUM [Concomitant]
  13. DICLOFENAC SODIUM [Concomitant]
  14. FOLIC ACID [Concomitant]
  15. LACTULOSE [Concomitant]
  16. LIDOCAINE [Concomitant]
  17. MICONAZOLE [Concomitant]
  18. TPN [Concomitant]
  19. OMEPRAZOLE [Concomitant]
  20. PROCHLORPERAZINE [Concomitant]
  21. SALBUTAMOL CFC-FREE INHALER [Concomitant]
  22. SYMBICORT [Concomitant]

REACTIONS (4)
  - CHOLESTASIS [None]
  - CONVULSION [None]
  - DRUG EXPOSURE DURING PREGNANCY [None]
  - PREGNANCY [None]
